FAERS Safety Report 6059191-1 (Version None)
Quarter: 2009Q1

REPORT INFORMATION
  Report Type: 
  Country: None (occurrence: None)
  Receive Date: 20090127
  Receipt Date: 20090127
  Transmission Date: 20090719
  Serious: Yes (Other)
  Sender: FDA-Public Use
  Company Number: None

PATIENT
  Age: 35 Year
  Sex: Female
  Weight: 47.6277 kg

DRUGS (2)
  1. CEFDINIR [Suspect]
     Indication: BRONCHITIS
     Dosage: ONE PILL - 300 MILLIGRAMS TWICE A DAY PO
     Route: 048
     Dates: start: 20081201, end: 20081208
  2. CEFDINIR [Suspect]
     Indication: SINUSITIS
     Dosage: ONE PILL - 300 MILLIGRAMS TWICE A DAY PO
     Route: 048
     Dates: start: 20081201, end: 20081208

REACTIONS (4)
  - BACTERIA STOOL IDENTIFIED [None]
  - CLOSTRIDIAL INFECTION [None]
  - HAEMATOCHEZIA [None]
  - MUCOUS STOOLS [None]
